FAERS Safety Report 14168351 (Version 1)
Quarter: 2017Q4

REPORT INFORMATION
  Report Type: Spontaneous
  Country: US (occurrence: US)
  Receive Date: 20171107
  Receipt Date: 20171107
  Transmission Date: 20180321
  Serious: No
  Sender: FDA-Public Use
  Company Number: US-SA-2017SA136800

PATIENT
  Age: 55 Year
  Sex: Female

DRUGS (3)
  1. SOLOSTAR [Suspect]
     Active Substance: DEVICE
     Dosage: DOSE:34 UNIT(S)
     Dates: start: 2017
  2. INSULIN [Concomitant]
     Active Substance: INSULIN NOS
  3. TOUJEO [Suspect]
     Active Substance: INSULIN GLARGINE
     Dosage: DOSE:34 UNIT(S)
     Route: 051
     Dates: start: 2017

REACTIONS (3)
  - Limb mass [Unknown]
  - Visual impairment [Unknown]
  - Gait disturbance [Unknown]
